FAERS Safety Report 5042484-4 (Version None)
Quarter: 2006Q2

REPORT INFORMATION
  Report Type: 
  Country: None (occurrence: None)
  Receive Date: 20060627
  Receipt Date: 20060613
  Transmission Date: 20061013
  Serious: Yes (Other)
  Sender: FDA-Public Use
  Company Number: HQWYE940624APR06

PATIENT
  Age: 99 Year
  Sex: Female

DRUGS (5)
  1. CORDARONE [Suspect]
     Indication: ATRIAL FIBRILLATION
     Dosage: SEE IMAGE,  ORAL
     Route: 048
     Dates: start: 20050101, end: 20051108
  2. CORDARONE [Suspect]
     Indication: ATRIAL FIBRILLATION
     Dosage: SEE IMAGE,  ORAL
     Route: 048
     Dates: start: 20051109, end: 20060314
  3. OMEPRAZOLE [Concomitant]
  4. INDERAL [Concomitant]
  5. STILNOCT (ZOLPIDEM TARTRATE) [Concomitant]

REACTIONS (3)
  - DEPRESSION [None]
  - HYPERTHYROIDISM [None]
  - MUSCULAR WEAKNESS [None]
